FAERS Safety Report 6928922-8 (Version None)
Quarter: 2010Q3

REPORT INFORMATION
  Report Type: 
  Country: None (occurrence: None)
  Receive Date: 20100817
  Receipt Date: 20100804
  Transmission Date: 20110219
  Serious: Yes (Other)
  Sender: FDA-Public Use
  Company Number: CHPA2010US12685

PATIENT
  Age: 58 Year
  Sex: Male

DRUGS (1)
  1. DOAN'S EXTRA STRENGTH [Suspect]
     Indication: MUSCLE SPASMS
     Dosage: 2 CAPLETS TWICE
     Route: 048
     Dates: start: 20100804, end: 20100804

REACTIONS (3)
  - OFF LABEL USE [None]
  - TINNITUS [None]
  - VISUAL IMPAIRMENT [None]
